FAERS Safety Report 17719884 (Version 1)
Quarter: 2020Q2

REPORT INFORMATION
  Report Type: Report from Study
  Country: DE (occurrence: DE)
  Receive Date: 20200428
  Receipt Date: 20200428
  Transmission Date: 20200714
  Serious: Yes (Hospitalization, Other)
  Sender: FDA-Public Use
  Company Number: DE-JNJFOC-20200431147

PATIENT
  Age: 49 Year
  Sex: Female
  Weight: 44 kg

DRUGS (3)
  1. HUMIRA [Concomitant]
     Active Substance: ADALIMUMAB
  2. STELARA [Suspect]
     Active Substance: USTEKINUMAB
     Indication: PSORIASIS
     Route: 058
     Dates: start: 2016
  3. CORTISONE [Concomitant]
     Active Substance: CORTISONE

REACTIONS (11)
  - Incisional hernia [Recovered/Resolved]
  - Colitis [Recovered/Resolved]
  - Peritonitis [Recovered/Resolved]
  - Large intestine anastomosis [Unknown]
  - Restless legs syndrome [Recovered/Resolved]
  - Large intestinal stenosis [Recovered/Resolved]
  - Pyoderma gangrenosum [Unknown]
  - Gastrointestinal stoma complication [Recovered/Resolved]
  - Stomal hernia [Recovered/Resolved]
  - Rectal perforation [Recovered/Resolved]
  - Perineal fistula [Recovered/Resolved]
